FAERS Safety Report 9399217 (Version 1)
Quarter: 2013Q3

REPORT INFORMATION
  Report Type: Spontaneous
  Country: ES (occurrence: None)
  Receive Date: 20130709
  Receipt Date: 20130709
  Transmission Date: 20140515
  Serious: Yes (Hospitalization)
  Sender: FDA-Public Use
  Company Number: AUR-APL-2013-05601

PATIENT
  Age: 41 Year
  Sex: Female

DRUGS (3)
  1. LEVOFLOXACIN [Suspect]
     Indication: PRODUCT USED FOR UNKNOWN INDICATION
  2. CEFTRIAXONE (CEFTRIAXONE) [Concomitant]
  3. AZITHROMYCIN (AZITHROMYCIN) [Concomitant]

REACTIONS (4)
  - Confusional state [None]
  - Attention deficit/hyperactivity disorder [None]
  - Memory impairment [None]
  - Disorientation [None]
